FAERS Safety Report 19414987 (Version 2)
Quarter: 2021Q2

REPORT INFORMATION
  Report Type: Spontaneous
  Country: CZ (occurrence: CZ)
  Receive Date: 20210614
  Receipt Date: 20210616
  Transmission Date: 20210717
  Serious: Yes (Other)
  Sender: FDA-Public Use
  Company Number: CZ-IPSEN BIOPHARMACEUTICALS, INC.-2021-14537

PATIENT
  Sex: Male

DRUGS (2)
  1. SOMATULINE AUTOGEL [Suspect]
     Active Substance: LANREOTIDE ACETATE
     Indication: NEUROENDOCRINE CARCINOMA METASTATIC
     Route: 065
     Dates: start: 201802
  2. CAPECITABIN [Concomitant]
     Active Substance: CAPECITABINE
     Indication: PROPHYLAXIS
     Dates: start: 202005, end: 202101

REACTIONS (3)
  - Diarrhoea [Unknown]
  - Carcinoid syndrome [Unknown]
  - Abdominal pain [Unknown]
